FAERS Safety Report 7423891-9 (Version None)
Quarter: 2011Q2

REPORT INFORMATION
  Report Type: 
  Country: None (occurrence: None)
  Receive Date: 20110419
  Receipt Date: 20110412
  Transmission Date: 20111010
  Serious: Yes (Hospitalization)
  Sender: FDA-Public Use
  Company Number: A0884627A

PATIENT
  Age: 75 Year
  Sex: Female

DRUGS (1)
  1. AVANDIA [Suspect]
     Indication: DIABETES MELLITUS
     Route: 048
     Dates: start: 20020111, end: 20020809

REACTIONS (4)
  - MYOCARDIAL ISCHAEMIA [None]
  - DELIRIUM [None]
  - DEPRESSION [None]
  - CARDIAC FAILURE CONGESTIVE [None]
